FAERS Safety Report 8269803-X (Version None)
Quarter: 2012Q2

REPORT INFORMATION
  Report Type: 
  Country: None (occurrence: None)
  Receive Date: 20120410
  Receipt Date: 20120403
  Transmission Date: 20120825
  Serious: Yes (Hospitalization)
  Sender: FDA-Public Use
  Company Number: JP-VERTEX PHARMACEUTICALS INC.-AE-2012-004896

PATIENT
  Age: 70 Year
  Sex: Female

DRUGS (3)
  1. RIBAVIRIN [Concomitant]
     Route: 048
     Dates: start: 20120326, end: 20120403
  2. TELAVIC (TELAPREVIR) [Suspect]
     Route: 048
  3. PEGINTERFERON [Concomitant]
     Route: 051
     Dates: start: 20120326

REACTIONS (1)
  - BLOOD CREATININE INCREASED [None]
